FAERS Safety Report 12238876 (Version 1)
Quarter: 2016Q2

REPORT INFORMATION
  Report Type: Report from Study
  Country: US (occurrence: US)
  Receive Date: 20160405
  Receipt Date: 20160405
  Transmission Date: 20160815
  Serious: Yes (Other)
  Sender: FDA-Public Use
  Company Number: US-JNJFOC-20160400119

PATIENT
  Age: 57 Year
  Sex: Female

DRUGS (14)
  1. STELARA [Suspect]
     Active Substance: USTEKINUMAB
     Indication: BURSITIS
     Route: 058
     Dates: start: 201512
  2. STELARA [Suspect]
     Active Substance: USTEKINUMAB
     Indication: RHEUMATOID ARTHRITIS
     Route: 058
     Dates: start: 201512
  3. DULOXETINE. [Concomitant]
     Active Substance: DULOXETINE
     Indication: FIBROMYALGIA
     Route: 048
     Dates: start: 2011
  4. STELARA [Suspect]
     Active Substance: USTEKINUMAB
     Indication: PSORIATIC ARTHROPATHY
     Route: 058
     Dates: start: 201512
  5. BABY ASPIRIN [Concomitant]
     Active Substance: ASPIRIN
     Route: 048
     Dates: start: 2013
  6. AMBIEN [Concomitant]
     Active Substance: ZOLPIDEM TARTRATE
     Indication: SLEEP DISORDER THERAPY
     Route: 048
     Dates: start: 2014
  7. STELARA [Suspect]
     Active Substance: USTEKINUMAB
     Indication: FIBROMYALGIA
     Route: 058
     Dates: start: 201512
  8. GABAPENTIN. [Concomitant]
     Active Substance: GABAPENTIN
     Indication: RESTLESS LEGS SYNDROME
     Route: 048
     Dates: start: 2014
  9. VITAMIN D [Concomitant]
     Active Substance: CHOLECALCIFEROL
     Indication: FIBROMYALGIA
     Route: 048
     Dates: start: 2012
  10. OMEPRAZOLE. [Concomitant]
     Active Substance: OMEPRAZOLE
     Indication: GASTROOESOPHAGEAL REFLUX DISEASE
     Route: 048
     Dates: start: 2010
  11. HYDROCODONE [Concomitant]
     Active Substance: HYDROCODONE
     Indication: PAIN
     Dosage: 7.5MG/325MG
     Route: 048
     Dates: start: 2013
  12. SAVELLA [Concomitant]
     Active Substance: MILNACIPRAN HYDROCHLORIDE
     Route: 048
     Dates: start: 2014
  13. FOLIC ACID. [Concomitant]
     Active Substance: FOLIC ACID
     Route: 048
     Dates: start: 2013
  14. XANAX [Concomitant]
     Active Substance: ALPRAZOLAM
     Indication: NERVOUSNESS
     Route: 048
     Dates: start: 2015

REACTIONS (5)
  - Insomnia [Not Recovered/Not Resolved]
  - Off label use [Unknown]
  - Upper respiratory tract infection [Unknown]
  - Product use issue [Unknown]
  - Pneumonia [Unknown]

NARRATIVE: CASE EVENT DATE: 201512
